FAERS Safety Report 12610341 (Version 1)
Quarter: 2016Q3

REPORT INFORMATION
  Report Type: Spontaneous
  Country: BR (occurrence: BR)
  Receive Date: 20160801
  Receipt Date: 20160801
  Transmission Date: 20161109
  Serious: Yes (Hospitalization, Other)
  Sender: FDA-Public Use
  Company Number: BR-GLAXOSMITHKLINE-BR2016GSK109735

PATIENT
  Age: 2 Year
  Sex: Male
  Weight: 17 kg

DRUGS (5)
  1. BRONDILAT (AMBROXOL ACEFYLLINATE) [Suspect]
     Active Substance: AMBROXOL ACEFYLLINATE
     Indication: ASTHMA
     Dosage: 3.5 ML, BID
     Route: 048
  2. ZINNAT [Suspect]
     Active Substance: CEFUROXIME AXETIL
     Indication: EAR INFECTION
     Dosage: 5 ML, BID
     Route: 048
     Dates: start: 20160712, end: 20160717
  3. AEROLIN [Suspect]
     Active Substance: ALBUTEROL
     Indication: PRODUCT USED FOR UNKNOWN INDICATION
     Dosage: 2 PUFF(S), QID
     Route: 055
  4. CLENIL (BECLOMETASONE DIPROPIONATE) [Suspect]
     Active Substance: BECLOMETHASONE DIPROPIONATE
     Indication: ASTHMA
     Dosage: 0.5 UNK, BID
     Route: 055
     Dates: start: 20160708
  5. ZINNAT [Suspect]
     Active Substance: CEFUROXIME AXETIL
     Indication: EAR INFECTION

REACTIONS (7)
  - Crying [Unknown]
  - Pyrexia [Unknown]
  - Osteomyelitis [Unknown]
  - Ear pain [Unknown]
  - Diarrhoea [Unknown]
  - Vomiting [Unknown]
  - Meningitis [Recovered/Resolved]

NARRATIVE: CASE EVENT DATE: 20160717
